FAERS Safety Report 9023928 (Version 2)
Quarter: 2013Q1

REPORT INFORMATION
  Report Type: Spontaneous
  Country: US (occurrence: US)
  Receive Date: 20130121
  Receipt Date: 20130206
  Transmission Date: 20140127
  Serious: No
  Sender: FDA-Public Use
  Company Number: US-PFIZER INC-2013019941

PATIENT
  Sex: Male

DRUGS (3)
  1. GABAPENTIN [Suspect]
     Indication: PAIN
     Dosage: 600 MG, UNK
  2. GABAPENTIN [Suspect]
     Dosage: 900 MG, UNK
  3. HYDROCODONE [Suspect]
     Indication: PAIN
     Dosage: 325 MG, UNK

REACTIONS (1)
  - Drug ineffective [Unknown]
